FAERS Safety Report 8878195 (Version 1)
Quarter: 2012Q4

REPORT INFORMATION
  Report Type: 
  Country: US (occurrence: US)
  Receive Date: 20121025
  Receipt Date: 20121025
  Transmission Date: 20130627
  Serious: No
  Sender: FDA-Public Use
  Company Number: US-AMGEN-USASP2012020856

PATIENT
  Sex: Female

DRUGS (7)
  1. ENBREL [Suspect]
     Indication: PRODUCT USED FOR UNKNOWN INDICATION
     Dosage: 50 mg, qwk
     Route: 058
  2. NAPROXEN [Concomitant]
     Dosage: 250 mg, UNK
  3. ALBUTEROL                          /00139501/ [Concomitant]
     Dosage: 90 mug, UNK
  4. COD LIVER [Concomitant]
     Dosage: UNK
  5. VITAMIN C ACEROLA [Concomitant]
     Dosage: 500 mg, UNK
  6. MULTIVITAMIN                       /00097801/ [Concomitant]
     Dosage: UNK
  7. VITAMIN D /00107901/ [Concomitant]

REACTIONS (1)
  - Localised infection [Unknown]
